FAERS Safety Report 5891706-6 (Version None)
Quarter: 2008Q3

REPORT INFORMATION
  Report Type: 
  Country: None (occurrence: None)
  Receive Date: 20080908
  Receipt Date: 20080529
  Transmission Date: 20090109
  Serious: No
  Sender: FDA-Public Use
  Company Number: 002#1#2008-00154

PATIENT
  Age: 58 Year
  Sex: Female

DRUGS (5)
  1. NEUPRO [Suspect]
     Indication: PARKINSON'S DISEASE
     Dosage: 2MG/24H,1 IN 1 D,TRANSDERMAL ; 4MG/24H,1 IN 1 D,TRANSDERMAL ; 6MG/24H,1 IN 1 D,TRANSDERMAL
     Route: 062
  2. STALEVO 100 [Concomitant]
  3. SINEMET [Concomitant]
  4. AMANTADINE [Concomitant]
  5. STALEVO 100 [Concomitant]

REACTIONS (5)
  - APPLICATION SITE EROSION [None]
  - APPLICATION SITE ERYTHEMA [None]
  - APPLICATION SITE REACTION [None]
  - APPLICATION SITE VESICLES [None]
  - OFF LABEL USE [None]
